FAERS Safety Report 8879421 (Version 2)
Quarter: 2012Q4

REPORT INFORMATION
  Report Type: 
  Country: US (occurrence: US)
  Receive Date: 20121101
  Receipt Date: 20121129
  Transmission Date: 20130627
  Serious: No
  Sender: FDA-Public Use
  Company Number: US-BIOGENIDEC-2012BI047776

PATIENT
  Sex: Female

DRUGS (1)
  1. AVONEX [Suspect]
     Indication: MULTIPLE SCLEROSIS
     Route: 030
     Dates: start: 20111212, end: 20120823

REACTIONS (3)
  - Multiple sclerosis [Unknown]
  - Blood test abnormal [Recovered/Resolved]
  - Liver disorder [Recovered/Resolved]
